FAERS Safety Report 21040503 (Version 1)
Quarter: 2022Q3

REPORT INFORMATION
  Report Type: Spontaneous
  Country: US (occurrence: US)
  Receive Date: 20220704
  Receipt Date: 20220704
  Transmission Date: 20221027
  Serious: No
  Sender: FDA-Public Use
  Company Number: US-SANOFI-01164405

PATIENT
  Age: 14 Year
  Sex: Male

DRUGS (2)
  1. ALPROLIX [Suspect]
     Active Substance: EFTRENONACOG ALFA
     Indication: Factor IX deficiency
     Dosage: UNK UNK, QW
     Dates: start: 2021
  2. ALPROLIX [Suspect]
     Active Substance: EFTRENONACOG ALFA
     Indication: Factor IX deficiency
     Dosage: UNK UNK, QW
     Dates: start: 2021

REACTIONS (2)
  - Epistaxis [Recovered/Resolved]
  - Tongue haemorrhage [Recovered/Resolved]

NARRATIVE: CASE EVENT DATE: 20220620
